FAERS Safety Report 10265657 (Version 2)
Quarter: 2014Q2

REPORT INFORMATION
  Report Type: Spontaneous
  Country: US (occurrence: US)
  Receive Date: 20140627
  Receipt Date: 20140627
  Transmission Date: 20141212
  Serious: Yes (Other)
  Sender: FDA-Public Use
  Company Number: US-ABBVIE-14P-163-1248746-00

PATIENT
  Sex: Male
  Weight: 69.01 kg

DRUGS (5)
  1. ANDROGEL [Suspect]
     Dosage: 7.5 GRM DAILY
     Route: 061
     Dates: start: 201311
  2. BACTRIM [Concomitant]
     Indication: PRODUCT USED FOR UNKNOWN INDICATION
  3. CALCIUM [Concomitant]
     Indication: PRODUCT USED FOR UNKNOWN INDICATION
  4. LIPITOR [Concomitant]
     Indication: PRODUCT USED FOR UNKNOWN INDICATION
  5. ANDROGEL [Suspect]
     Indication: HYPOGONADISM
     Dosage: 5 GRAM PACKET DAILY
     Route: 061
     Dates: start: 2008, end: 201311

REACTIONS (8)
  - Nephrolithiasis [Recovered/Resolved]
  - Drug ineffective [Recovered/Resolved]
  - Fatigue [Recovered/Resolved]
  - Insomnia [Recovered/Resolved]
  - Blood testosterone decreased [Unknown]
  - Blood testosterone decreased [Not Recovered/Not Resolved]
  - Inappropriate schedule of drug administration [Not Recovered/Not Resolved]
  - Macular degeneration [Not Recovered/Not Resolved]
